FAERS Safety Report 7757727-3 (Version None)
Quarter: 2011Q3

REPORT INFORMATION
  Report Type: 
  Country: None (occurrence: None)
  Receive Date: 20110916
  Receipt Date: 20100824
  Transmission Date: 20111222
  Serious: No
  Sender: FDA-Public Use
  Company Number: US-ALLERGAN-1010950US

PATIENT
  Age: 65 Year
  Sex: Female

DRUGS (1)
  1. ACUVAIL [Suspect]
     Indication: PREOPERATIVE CARE
     Dosage: 1 GTT, BID
     Route: 047
     Dates: start: 20100815

REACTIONS (1)
  - EYE IRRITATION [None]
